FAERS Safety Report 9357350 (Version 2)
Quarter: 2014Q2

REPORT INFORMATION
  Report Type: Spontaneous
  Country: FR (occurrence: FR)
  Receive Date: 20130620
  Receipt Date: 20140630
  Transmission Date: 20141212
  Serious: Yes (Other)
  Sender: FDA-Public Use
  Company Number: FR-MPIJNJ-2013-04125

PATIENT
  Sex: 0

DRUGS (6)
  1. VELCADE [Suspect]
     Indication: MANTLE CELL LYMPHOMA
     Dosage: UNK
     Route: 065
     Dates: start: 2008, end: 20080923
  2. VELCADE [Suspect]
     Dosage: 1.3 MG/M2, UNK
     Route: 058
     Dates: start: 20130402, end: 20130405
  3. VELCADE [Suspect]
     Dosage: 1.3 UNK, UNK
     Route: 042
     Dates: start: 20130409, end: 20130510
  4. MABTHERA [Concomitant]
     Indication: MANTLE CELL LYMPHOMA
     Dosage: 375 MG/M2, UNK
     Route: 042
     Dates: start: 201112
  5. BENDAMUSTINE [Concomitant]
     Indication: MANTLE CELL LYMPHOMA
     Dosage: 90 MG/M2, UNK
     Route: 042
     Dates: start: 20130430
  6. DEXAMETHASONE [Concomitant]
     Indication: MANTLE CELL LYMPHOMA

REACTIONS (3)
  - Injection site vasculitis [Recovered/Resolved]
  - Injection site erythema [Recovered/Resolved]
  - Off label use [Unknown]
